FAERS Safety Report 8424930-9 (Version None)
Quarter: 2012Q2

REPORT INFORMATION
  Report Type: 
  Country: None (occurrence: None)
  Receive Date: 20120611
  Receipt Date: 20120609
  Transmission Date: 20120825
  Serious: No
  Sender: FDA-Public Use
  Company Number: US-PFIZER INC-2012138858

PATIENT
  Sex: Female
  Weight: 65.8 kg

DRUGS (9)
  1. CELEBREX [Suspect]
     Dosage: 200 MG, DAILY
     Route: 048
     Dates: start: 20120608
  2. ALENDRONATE SODIUM [Concomitant]
     Dosage: UNK
  3. CELEBREX [Suspect]
     Indication: ROTATOR CUFF SYNDROME
     Dosage: UNK
     Route: 048
  4. ASPIRIN [Concomitant]
     Dosage: 81 MG, UNK
  5. AZITHROMYCIN [Suspect]
     Indication: BRONCHITIS
     Dosage: 250 MG, UNK
     Dates: start: 20120608
  6. ESTRACE [Concomitant]
     Indication: CYSTITIS
     Dosage: UNK
  7. CEPHALEXIN [Concomitant]
     Indication: CYSTITIS
     Dosage: 250 MG, DAILY
  8. HYDROCHLOROTHIAZIDE [Concomitant]
     Dosage: 25 MG, DAILY
  9. PRILOSEC [Concomitant]
     Dosage: 20 MG, DAILY

REACTIONS (1)
  - RASH PAPULAR [None]
